FAERS Safety Report 7601954-2 (Version None)
Quarter: 2011Q2

REPORT INFORMATION
  Report Type: 
  Country: None (occurrence: None)
  Receive Date: 20110629
  Receipt Date: 20100607
  Transmission Date: 20111010
  Serious: Yes (Other)
  Sender: FDA-Public Use
  Company Number: 709737

PATIENT
  Sex: Female

DRUGS (1)
  1. INTERFERON ALFA [Suspect]
     Indication: HEPATITIS
     Dates: start: 20050101, end: 20070101

REACTIONS (1)
  - CONVULSION [None]
